FAERS Safety Report 7276486-4 (Version None)
Quarter: 2011Q1

REPORT INFORMATION
  Report Type: 
  Country: None (occurrence: None)
  Receive Date: 20110204
  Receipt Date: 20110201
  Transmission Date: 20110831
  Serious: Yes (Other)
  Sender: FDA-Public Use
  Company Number: US-PFIZER INC-2011023200

PATIENT

DRUGS (1)
  1. PRISTIQ [Suspect]
     Dosage: UNK

REACTIONS (6)
  - EMOTIONAL DISORDER [None]
  - WEIGHT INCREASED [None]
  - SUICIDAL IDEATION [None]
  - FRUSTRATION [None]
  - BLOOD CHOLESTEROL INCREASED [None]
  - ANGER [None]
